FAERS Safety Report 19953438 (Version 1)
Quarter: 2021Q4

REPORT INFORMATION
  Report Type: Spontaneous
  Country: US (occurrence: US)
  Receive Date: 20211014
  Receipt Date: 20211014
  Transmission Date: 20220303
  Serious: Yes (Other)
  Sender: FDA-Public Use
  Company Number: None

PATIENT
  Age: 53 Year
  Sex: Female
  Weight: 103.5 kg

DRUGS (12)
  1. TINACTIN [Suspect]
     Active Substance: TOLNAFTATE
     Indication: Tinea pedis
     Dosage: ?          QUANTITY:1 SPRAY(S);
     Route: 061
     Dates: start: 20210828, end: 20211010
  2. HYDROCHLOROTHIAZIDE\LOSARTAN [Concomitant]
     Active Substance: HYDROCHLOROTHIAZIDE\LOSARTAN
  3. PANTOPRAZOLE [Concomitant]
     Active Substance: PANTOPRAZOLE
  4. VITAMIN D3 [Concomitant]
     Active Substance: CHOLECALCIFEROL
  5. ATORVASTATIN [Concomitant]
     Active Substance: ATORVASTATIN
  6. SINGULAIR [Concomitant]
     Active Substance: MONTELUKAST SODIUM
  7. FLONASE [Concomitant]
     Active Substance: FLUTICASONE PROPIONATE
  8. FLEXERIL [Concomitant]
     Active Substance: CYCLOBENZAPRINE HYDROCHLORIDE
  9. FIORICET [Concomitant]
     Active Substance: ACETAMINOPHEN\BUTALBITAL\CAFFEINE
  10. TUMS [Concomitant]
     Active Substance: CALCIUM CARBONATE
  11. PEPCID [Concomitant]
     Active Substance: FAMOTIDINE
  12. VITAMIN B12 [Concomitant]
     Active Substance: CYANOCOBALAMIN

REACTIONS (6)
  - Pain in extremity [None]
  - Blister [None]
  - Recalled product administered [None]
  - Skin induration [None]
  - Skin discolouration [None]
  - Alopecia [None]

NARRATIVE: CASE EVENT DATE: 20211011
